FAERS Safety Report 9227724 (Version 2)
Quarter: 2013Q2

REPORT INFORMATION
  Report Type: Report from Study
  Country: HU (occurrence: HU)
  Receive Date: 20130412
  Receipt Date: 20130422
  Transmission Date: 20140414
  Serious: Yes (Hospitalization)
  Sender: FDA-Public Use
  Company Number: HU-AMGEN-HUNCT2013025376

PATIENT
  Age: 66 Year
  Sex: Female

DRUGS (15)
  1. ROMIPLOSTIM [Suspect]
     Indication: IDIOPATHIC THROMBOCYTOPENIC PURPURA
     Dosage: UNK UNK, QWK
     Route: 058
     Dates: start: 20100713, end: 20130402
  2. ALEVE [Concomitant]
     Dosage: 220 MG, AS NECESSARY
     Route: 048
     Dates: start: 20100822
  3. BETALOC [Concomitant]
     Dosage: 25 MG, BID
     Route: 048
     Dates: start: 2002
  4. ATORIS [Concomitant]
     Dosage: 20 MG, QD
     Route: 048
     Dates: start: 2002
  5. VENORUTON [Concomitant]
     Dosage: 500 MG, UNK
     Route: 048
     Dates: start: 2002
  6. DETRALEX [Concomitant]
     Dosage: 500 MG, UNK
     Route: 048
     Dates: start: 2002
  7. KALDYUM [Concomitant]
     Dosage: 600 MG, UNK
     Route: 048
     Dates: start: 2010
  8. APO-FAMOTIDIN [Concomitant]
     Dosage: 40 MG, UNK
     Route: 048
     Dates: start: 2002
  9. HUMULIN [Concomitant]
     Dosage: UNK
     Route: 058
     Dates: start: 2009
  10. LISOPRESS [Concomitant]
     Dosage: 5 MG, UNK
     Route: 048
     Dates: start: 2009
  11. VITAMIN D [Concomitant]
     Dosage: 3000 IU, UNK
     Route: 048
     Dates: start: 20100831
  12. FURON [Concomitant]
     Dosage: 60 MG, UNK
     Route: 048
     Dates: start: 20101005
  13. LATICORT [Concomitant]
     Dosage: 5 G, 2 TIMES/WK
     Route: 061
     Dates: start: 20101109
  14. GLYCERIN [Concomitant]
     Dosage: 5 G, 2 TIMES/WK
     Route: 061
     Dates: start: 20101109
  15. CASTOR OIL [Concomitant]
     Dosage: UNK UNK, TID
     Route: 061
     Dates: start: 20110607

REACTIONS (1)
  - Pulmonary embolism [Recovered/Resolved]
